FAERS Safety Report 5190086-1 (Version None)
Quarter: 2006Q4

REPORT INFORMATION
  Report Type: 
  Country: None (occurrence: None)
  Receive Date: 20061222
  Receipt Date: 20061215
  Transmission Date: 20070319
  Serious: Yes (Other)
  Sender: FDA-Public Use
  Company Number: JP-JNJFOC-20061104329

PATIENT
  Sex: Female

DRUGS (2)
  1. ITRIZOLE [Suspect]
     Indication: ORAL CANDIDIASIS
     Route: 048
  2. PROMAC [Concomitant]
     Route: 048

REACTIONS (1)
  - ORAL MUCOSAL EXFOLIATION [None]
